FAERS Safety Report 10884805 (Version 1)
Quarter: 2015Q1

REPORT INFORMATION
  Report Type: Report from Study
  Country: RU (occurrence: RU)
  Receive Date: 20150304
  Receipt Date: 20150304
  Transmission Date: 20150721
  Serious: Yes (Death, Hospitalization)
  Sender: FDA-Public Use
  Company Number: RU-TEVA-404088USA

PATIENT
  Age: 73 Year
  Sex: Male

DRUGS (10)
  1. VELCADE [Suspect]
     Active Substance: BORTEZOMIB
     Dosage: UNKNOWN/D
     Route: 042
     Dates: start: 20121116
  2. VELCADE [Suspect]
     Active Substance: BORTEZOMIB
     Dosage: UNKNOWN/D
     Route: 042
     Dates: start: 20121113
  3. DOXORUBICIN HCL [Suspect]
     Active Substance: DOXORUBICIN HYDROCHLORIDE
     Indication: PROCTITIS
     Route: 042
     Dates: start: 20121106
  4. VELCADE [Suspect]
     Active Substance: BORTEZOMIB
     Indication: PLASMA CELL MYELOMA
     Route: 042
     Dates: start: 201211
  5. VELCADE [Suspect]
     Active Substance: BORTEZOMIB
     Dosage: UNKNOWN/D
     Route: 042
     Dates: start: 20121106
  6. DEXAMETHASONE. [Suspect]
     Active Substance: DEXAMETHASONE
     Indication: PROCTITIS
     Dosage: UNKNOWN/D
     Route: 048
     Dates: start: 20121106, end: 20121109
  7. VELCADE [Suspect]
     Active Substance: BORTEZOMIB
     Dosage: UNKNOWN/D
     Route: 042
     Dates: start: 20121109
  8. DEXAMETHASONE. [Suspect]
     Active Substance: DEXAMETHASONE
     Indication: PROCTITIS
     Dosage: UNKNOWN/D
     Route: 048
  9. BENDAMUSTINE [Suspect]
     Active Substance: BENDAMUSTINE
     Indication: PLASMA CELL MYELOMA
     Route: 042
     Dates: start: 200911
  10. VELCADE [Suspect]
     Active Substance: BORTEZOMIB
     Route: 042

REACTIONS (2)
  - Death [Fatal]
  - Proctitis [Recovered/Resolved]

NARRATIVE: CASE EVENT DATE: 20121215
